FAERS Safety Report 4792055-X (Version None)
Quarter: 2005Q4

REPORT INFORMATION
  Report Type: 
  Country: None (occurrence: None)
  Receive Date: 20051007
  Receipt Date: 20050809
  Transmission Date: 20060501
  Serious: Yes (Hospitalization, Disabling)
  Sender: FDA-Public Use
  Company Number: US-MERCK-0508USA01825

PATIENT
  Age: 42 Year
  Sex: Male
  Weight: 114 kg

DRUGS (9)
  1. VIOXX [Suspect]
     Indication: OSTEOARTHRITIS
     Route: 048
     Dates: start: 19991001, end: 20040930
  2. ASPIRIN [Concomitant]
     Indication: PROPHYLAXIS
     Route: 065
     Dates: start: 20021201
  3. TOPROL-XL [Concomitant]
     Indication: HYPERTENSION
     Route: 065
     Dates: start: 20011126, end: 20031201
  4. TOPROL-XL [Concomitant]
     Indication: CARDIAC DISORDER
     Route: 065
     Dates: start: 20011126, end: 20031201
  5. PLAVIX [Concomitant]
     Indication: THROMBOSIS PROPHYLAXIS
     Route: 065
     Dates: start: 20021201
  6. ZOCOR [Concomitant]
     Indication: BLOOD CHOLESTEROL INCREASED
     Route: 065
     Dates: start: 20021201
  7. ATENOLOL [Concomitant]
     Indication: HYPERTENSION
     Route: 065
     Dates: start: 20021201
  8. NITROSTAT [Concomitant]
     Route: 065
  9. COLAZAL [Concomitant]
     Indication: COLITIS ULCERATIVE
     Route: 065

REACTIONS (13)
  - ANGINA PECTORIS [None]
  - CHEST DISCOMFORT [None]
  - CHEST PAIN [None]
  - COLITIS ULCERATIVE [None]
  - CORONARY ARTERY DISEASE [None]
  - ERECTILE DYSFUNCTION [None]
  - GASTROOESOPHAGEAL REFLUX DISEASE [None]
  - INJURY [None]
  - MYOCARDIAL INFARCTION [None]
  - OESOPHAGITIS [None]
  - PLANTAR FASCIITIS [None]
  - TRANSIENT ISCHAEMIC ATTACK [None]
  - WRONG TECHNIQUE IN DRUG USAGE PROCESS [None]
